FAERS Safety Report 11578408 (Version 1)
Quarter: 2015Q3

REPORT INFORMATION
  Report Type: Spontaneous
  Country: IT (occurrence: IT)
  Receive Date: 20150930
  Receipt Date: 20150930
  Transmission Date: 20151125
  Serious: Yes (Hospitalization, Congenital Anomaly)
  Sender: FDA-Public Use
  Company Number: IT-JUBILANT CADISTA PHARMACEUTICALS-2015JUB00300

PATIENT
  Age: 1 Day
  Sex: Male

DRUGS (1)
  1. CARBAMAZEPINE. [Suspect]
     Active Substance: CARBAMAZEPINE
     Route: 064

REACTIONS (6)
  - VIIth nerve paralysis [Recovered/Resolved with Sequelae]
  - Craniofacial deformity [Recovered/Resolved with Sequelae]
  - Atrial septal defect [Recovered/Resolved]
  - Congenital arterial malformation [Recovered/Resolved]
  - Foetal exposure during pregnancy [Recovered/Resolved]
  - Ventricular septal defect [Recovered/Resolved]
